FAERS Safety Report 5578612-1 (Version None)
Quarter: 2007Q4

REPORT INFORMATION
  Report Type: 
  Country: None (occurrence: None)
  Receive Date: 20071227
  Receipt Date: 20071227
  Transmission Date: 20080405
  Serious: Yes (Other)
  Sender: FDA-Public Use
  Company Number: None

PATIENT
  Sex: Female
  Weight: 70.7611 kg

DRUGS (1)
  1. TRAMADOL HCL [Suspect]
     Indication: PAIN
     Dosage: 50 MG TWICE DAILY ORAL
     Route: 048
     Dates: start: 20071123

REACTIONS (5)
  - CHILLS [None]
  - FEELING ABNORMAL [None]
  - HEADACHE [None]
  - MIDDLE INSOMNIA [None]
  - NAUSEA [None]
